FAERS Safety Report 8253181 (Version 2)
Quarter: 2012Q4

REPORT INFORMATION
  Report Type: 
  Country: US (occurrence: US)
  Receive Date: 20111118
  Receipt Date: 20121023
  Transmission Date: 20130627
  Serious: No
  Sender: FDA-Public Use
  Company Number: US-AMGEN-USASP2011018307

PATIENT
  Age: 77 Year
  Sex: Male

DRUGS (5)
  1. ENBREL [Suspect]
     Indication: RHEUMATOID ARTHRITIS
     Dosage: 50 mg, qwk
     Route: 058
     Dates: start: 20100810, end: 20110404
  2. DIGOXIN [Concomitant]
     Dosage: UNK
  3. PRILOSEC                           /00661201/ [Concomitant]
     Dosage: UNK
  4. VIT D [Concomitant]
     Dosage: UNK
  5. DIOVAN [Concomitant]
     Dosage: UNK

REACTIONS (6)
  - Decreased immune responsiveness [Not Recovered/Not Resolved]
  - Nasal congestion [Not Recovered/Not Resolved]
  - Impaired healing [Not Recovered/Not Resolved]
  - Dental care [Recovered/Resolved]
  - Pyrexia [Recovered/Resolved]
  - Oral infection [Not Recovered/Not Resolved]
